FAERS Safety Report 11825015 (Version 4)
Quarter: 2016Q4

REPORT INFORMATION
  Report Type: Report from Study
  Country: IQ (occurrence: IQ)
  Receive Date: 20151211
  Receipt Date: 20161003
  Transmission Date: 20170206
  Serious: Yes (Other)
  Sender: FDA-Public Use
  Company Number: PHHY2015IQ160172

PATIENT
  Sex: Female

DRUGS (1)
  1. GLIVEC [Suspect]
     Active Substance: IMATINIB MESYLATE
     Indication: CHRONIC MYELOID LEUKAEMIA
     Dosage: 400 MG, QD
     Route: 048
     Dates: start: 2009

REACTIONS (10)
  - Urinary tract infection [Unknown]
  - Pyrexia [Recovering/Resolving]
  - Nephrolithiasis [Unknown]
  - Hypertension [Not Recovered/Not Resolved]
  - Oropharyngeal pain [Recovering/Resolving]
  - Kidney infection [Not Recovered/Not Resolved]
  - Blood pressure abnormal [Not Recovered/Not Resolved]
  - Flank pain [Unknown]
  - Cytogenetic analysis abnormal [Not Recovered/Not Resolved]
  - Tachycardia [Not Recovered/Not Resolved]

NARRATIVE: CASE EVENT DATE: 201608
